FAERS Safety Report 13959114 (Version 1)
Quarter: 2017Q3

REPORT INFORMATION
  Report Type: Spontaneous
  Country: US (occurrence: US)
  Receive Date: 20170911
  Receipt Date: 20170911
  Transmission Date: 20171128
  Serious: No
  Sender: FDA-Public Use
  Company Number: None

PATIENT
  Age: 77 Year
  Sex: Male
  Weight: 66 kg

DRUGS (10)
  1. MORPHINE SULFATE IR [Concomitant]
     Active Substance: MORPHINE SULFATE
  2. NINLARO [Suspect]
     Active Substance: IXAZOMIB
     Indication: PLASMA CELL MYELOMA
     Dosage: DAY 1, 8 AND 15
     Route: 048
     Dates: start: 20170628, end: 20170818
  3. MEGACE [Concomitant]
     Active Substance: MEGESTROL ACETATE
  4. ATENOLOL. [Concomitant]
     Active Substance: ATENOLOL
  5. XARELTO [Concomitant]
     Active Substance: RIVAROXABAN
  6. LOMOTIL [Concomitant]
     Active Substance: ATROPINE SULFATE\DIPHENOXYLATE HYDROCHLORIDE
  7. LORAZEPAM. [Concomitant]
     Active Substance: LORAZEPAM
  8. CYCLOBENZAPRINE. [Concomitant]
     Active Substance: CYCLOBENZAPRINE
  9. HYDROCODONE BITARTRATE AND ACETAMINOPHEN [Concomitant]
     Active Substance: ACETAMINOPHEN\HYDROCODONE BITARTRATE
  10. SERTRALINE [Concomitant]
     Active Substance: SERTRALINE HYDROCHLORIDE

REACTIONS (3)
  - Diarrhoea [None]
  - Abdominal discomfort [None]
  - Gastrointestinal pain [None]

NARRATIVE: CASE EVENT DATE: 20170911
